FAERS Safety Report 16327760 (Version 1)
Quarter: 2019Q2

REPORT INFORMATION
  Report Type: Spontaneous
  Country: CA (occurrence: CA)
  Receive Date: 20190517
  Receipt Date: 20190517
  Transmission Date: 20190711
  Serious: Yes (Other)
  Sender: FDA-Public Use
  Company Number: CA-TEVA-2019-CA-1050164

PATIENT
  Sex: Female

DRUGS (2)
  1. IBRANCE [Concomitant]
     Active Substance: PALBOCICLIB
     Indication: METASTATIC NEOPLASM
  2. ANASTROZOLE. [Suspect]
     Active Substance: ANASTROZOLE
     Indication: METASTATIC NEOPLASM
     Route: 048

REACTIONS (1)
  - Malignant neoplasm progression [Unknown]
